FAERS Safety Report 12331841 (Version 1)
Quarter: 2016Q2

REPORT INFORMATION
  Report Type: Spontaneous
  Country: TR (occurrence: TR)
  Receive Date: 20160504
  Receipt Date: 20160504
  Transmission Date: 20160815
  Serious: Yes (Hospitalization, Other)
  Sender: FDA-Public Use
  Company Number: TR-AMGEN-TURSP2016054776

PATIENT
  Age: 44 Year
  Sex: Male

DRUGS (3)
  1. PARICALCITOL. [Concomitant]
     Active Substance: PARICALCITOL
  2. MIMPARA [Suspect]
     Active Substance: CINACALCET HYDROCHLORIDE
     Indication: HYPERPARATHYROIDISM SECONDARY
     Dosage: 30 MUG, QD
     Route: 065
     Dates: start: 201004
  3. CALCITRIOL. [Concomitant]
     Active Substance: CALCITRIOL

REACTIONS (3)
  - Parathyroidectomy [Unknown]
  - Drug effect incomplete [Unknown]
  - Calciphylaxis [Unknown]

NARRATIVE: CASE EVENT DATE: 20120413
